FAERS Safety Report 17695028 (Version 1)
Quarter: 2020Q2

REPORT INFORMATION
  Report Type: Spontaneous
  Country: JP (occurrence: JP)
  Receive Date: 20200422
  Receipt Date: 20200422
  Transmission Date: 20200714
  Serious: Yes (Hospitalization)
  Sender: FDA-Public Use
  Company Number: JP-AMGEN-JPNSP2020049552

PATIENT
  Age: 53 Year
  Sex: Female
  Weight: 125 kg

DRUGS (11)
  1. ESLAX [Concomitant]
     Active Substance: ROCURONIUM BROMIDE
     Dosage: 50 MG
     Route: 042
     Dates: start: 20180516, end: 20180516
  2. AVASTIN [Concomitant]
     Active Substance: BEVACIZUMAB
     Indication: BREAST CANCER
     Dosage: UNK
     Route: 065
     Dates: start: 20151104
  3. RANMARK [Suspect]
     Active Substance: DENOSUMAB
     Indication: METASTASES TO BONE
     Dosage: 120 MG, ONCE EVERY 1 MO
     Route: 058
     Dates: start: 20151104, end: 20190517
  4. LAUGHING GAS [Concomitant]
     Active Substance: NITROUS OXIDE
     Dosage: UNK
     Dates: start: 20180516, end: 20180516
  5. BRIDION [Concomitant]
     Active Substance: SUGAMMADEX
     Dosage: 200 MG
     Route: 042
     Dates: start: 20180516, end: 20180516
  6. HALAVEN [Concomitant]
     Active Substance: ERIBULIN MESYLATE
     Indication: BREAST CANCER METASTATIC
     Dosage: 2.75 MG
     Route: 042
     Dates: start: 20160126, end: 20190516
  7. DIPRIVAN [Concomitant]
     Active Substance: PROPOFOL
     Dosage: 80 MG
     Route: 042
     Dates: start: 20180516, end: 20180516
  8. FENTANYL. [Concomitant]
     Active Substance: FENTANYL
     Dosage: 0.5 MG
     Route: 042
     Dates: start: 20180516, end: 20180516
  9. RANMARK [Suspect]
     Active Substance: DENOSUMAB
     Indication: BREAST CANCER
     Dosage: UNK UNK, UNK
     Route: 065
  10. PACLITAXEL. [Concomitant]
     Active Substance: PACLITAXEL
     Indication: BREAST CANCER
     Dosage: 180 MG
     Route: 042
     Dates: start: 20151104, end: 20160125
  11. SEVOFLURANE. [Concomitant]
     Active Substance: SEVOFLURANE
     Dosage: UNK
     Dates: start: 20180516, end: 20180516

REACTIONS (2)
  - Osteonecrosis of jaw [Not Recovered/Not Resolved]
  - Metastases to liver [Unknown]

NARRATIVE: CASE EVENT DATE: 20160126
